FAERS Safety Report 19909204 (Version 3)
Quarter: 2021Q4

REPORT INFORMATION
  Report Type: Other
  Country: US (occurrence: US)
  Receive Date: 20211001
  Receipt Date: 20211207
  Transmission Date: 20220304
  Serious: Yes (Death, Congenital Anomaly, Other)
  Sender: FDA-Public Use
  Company Number: US-COVIS PHARMA GMBH-2021COV24202

PATIENT
  Sex: Female
  Weight: 0.297 kg

DRUGS (1)
  1. MAKENA [Suspect]
     Active Substance: HYDROXYPROGESTERONE CAPROATE
     Indication: Foetal exposure during pregnancy
     Route: 064
     Dates: start: 20210604, end: 20210730

REACTIONS (5)
  - Foetal growth restriction [Unknown]
  - Nonreassuring foetal heart rate pattern [Unknown]
  - Congenital cystic kidney disease [Not Recovered/Not Resolved]
  - Single umbilical artery [Not Recovered/Not Resolved]
  - Premature baby [Fatal]

NARRATIVE: CASE EVENT DATE: 20210101
